FAERS Safety Report 16350996 (Version 2)
Quarter: 2019Q2

REPORT INFORMATION
  Report Type: Spontaneous
  Country: US (occurrence: US)
  Receive Date: 20190524
  Receipt Date: 20190531
  Transmission Date: 20190711
  Serious: Yes (Death, Other)
  Sender: FDA-Public Use
  Company Number: US-ALKEM LABORATORIES LIMITED-US-ALKEM-2019-04468

PATIENT
  Age: 18 Month
  Sex: Female

DRUGS (1)
  1. BENZONATATE. [Suspect]
     Active Substance: BENZONATATE
     Indication: PRODUCT USED FOR UNKNOWN INDICATION
     Dosage: CHEWED 2 PERLES
     Route: 048

REACTIONS (4)
  - Toxicity to various agents [Fatal]
  - Overdose [Fatal]
  - Unresponsive to stimuli [Unknown]
  - Choking [Unknown]
